FAERS Safety Report 8627798 (Version 2)
Quarter: 2012Q4

REPORT INFORMATION
  Report Type: 
  Country: US (occurrence: US)
  Receive Date: 20120621
  Receipt Date: 20120911
  Transmission Date: 20130627
  Serious: Yes (Other)
  Sender: FDA-Public Use
  Company Number: US-INCYTE CORPORATION-2012IN001044

PATIENT
  Sex: Male
  Weight: 93.88 kg

DRUGS (4)
  1. JAKAFI [Suspect]
     Indication: SPLENOMEGALY
     Dosage: 15 mg, bid
     Route: 048
     Dates: start: 20111223, end: 201203
  2. JAKAFI [Suspect]
     Dosage: 15 mg, bid
     Route: 048
     Dates: start: 20120403
  3. HYDREA [Suspect]
     Dosage: UNK, qhs
  4. PROZAC [Suspect]
     Dosage: UNK, qhs

REACTIONS (3)
  - Ligament rupture [Not Recovered/Not Resolved]
  - Gait disturbance [Not Recovered/Not Resolved]
  - Fatigue [Not Recovered/Not Resolved]
